FAERS Safety Report 7124261-3 (Version None)
Quarter: 2010Q4

REPORT INFORMATION
  Report Type: 
  Country: None (occurrence: None)
  Receive Date: 20101126
  Receipt Date: 20101111
  Transmission Date: 20110411
  Serious: Yes (Hospitalization)
  Sender: FDA-Public Use
  Company Number: PHHO2010US16418

PATIENT
  Age: 54 Year
  Sex: Male

DRUGS (17)
  1. ALDESLEUKIN C-ALDE+ [Suspect]
     Indication: CHRONIC GRAFT VERSUS HOST DISEASE
     Dosage: DAILY
     Route: 058
     Dates: start: 20100830, end: 20100906
  2. ALDESLEUKIN C-ALDE+ [Suspect]
     Dosage: NO TREATMENT
     Dates: start: 20100907, end: 20100907
  3. ALDESLEUKIN C-ALDE+ [Suspect]
     Dosage: UNK
     Route: 058
     Dates: start: 20100908, end: 20101014
  4. ACYCLOVIR [Concomitant]
     Dosage: UNK
  5. DEXAMETHASONE [Concomitant]
  6. CLOBETASOL PROPIONATE [Concomitant]
  7. PILOCARPINE [Concomitant]
  8. PRAVASTATIN [Concomitant]
  9. PREDNISONE [Concomitant]
  10. TACROLIMUS [Concomitant]
  11. COLACE [Concomitant]
  12. VITAMIN D3 [Concomitant]
  13. SENNA [Concomitant]
  14. CYCLOSPORINE [Concomitant]
  15. FLUCONAZOLE [Concomitant]
  16. OMEPRAZOLE [Concomitant]
  17. PENTAMIDINE ISETHIONATE [Concomitant]

REACTIONS (14)
  - DEEP VEIN THROMBOSIS [None]
  - DIVERTICULUM [None]
  - EROSIVE OESOPHAGITIS [None]
  - FAECES DISCOLOURED [None]
  - GASTROINTESTINAL ARTERIOVENOUS MALFORMATION [None]
  - HYPOTENSION [None]
  - INFECTION [None]
  - INTRACARDIAC THROMBUS [None]
  - LOWER GASTROINTESTINAL HAEMORRHAGE [None]
  - PYREXIA [None]
  - RECTAL FISSURE [None]
  - RECTAL HAEMORRHAGE [None]
  - TACHYCARDIA [None]
  - VENTRICULAR HYPOKINESIA [None]
